FAERS Safety Report 5061098-3 (Version None)
Quarter: 2006Q3

REPORT INFORMATION
  Report Type: 
  Country: None (occurrence: None)
  Receive Date: 20060720
  Receipt Date: 20060710
  Transmission Date: 20061208
  Serious: Yes (Death, Other)
  Sender: FDA-Public Use
  Company Number: 163-21880-06020347

PATIENT
  Age: 74 Year
  Sex: Male

DRUGS (3)
  1. REVLIMID [Suspect]
     Indication: MYELODYSPLASTIC SYNDROME
     Dosage: SEE IMAGE
     Route: 048
     Dates: start: 20060126, end: 20060201
  2. REVLIMID [Suspect]
     Indication: MYELODYSPLASTIC SYNDROME
     Dosage: SEE IMAGE
     Route: 048
     Dates: start: 20060220, end: 20060607
  3. ARANESP [Concomitant]

REACTIONS (5)
  - HAEMOGLOBIN DECREASED [None]
  - PLATELET COUNT DECREASED [None]
  - PYREXIA [None]
  - RED BLOOD CELL COUNT DECREASED [None]
  - UNEVALUABLE EVENT [None]
